FAERS Safety Report 9564029 (Version 1)
Quarter: 2013Q3

REPORT INFORMATION
  Report Type: Spontaneous
  Country: KR (occurrence: KR)
  Receive Date: 20130928
  Receipt Date: 20130928
  Transmission Date: 20140515
  Serious: Yes (Other)
  Sender: FDA-Public Use
  Company Number: KR-ACCORD-019563

PATIENT
  Sex: 0

DRUGS (1)
  1. MITOMYCIN [Suspect]
     Indication: PRODUCT USED FOR UNKNOWN INDICATION
     Route: 031

REACTIONS (5)
  - Accidental exposure to product [Unknown]
  - Iris atrophy [Not Recovered/Not Resolved]
  - Corneal oedema [Recovering/Resolving]
  - Cystoid macular oedema [Not Recovered/Not Resolved]
  - Visual field defect [Not Recovered/Not Resolved]
